FAERS Safety Report 9640394 (Version 1)
Quarter: 2013Q4

REPORT INFORMATION
  Report Type: Spontaneous
  Country: US (occurrence: None)
  Receive Date: 20131021
  Receipt Date: 20131021
  Transmission Date: 20140711
  Serious: Yes (Hospitalization)
  Sender: FDA-Public Use
  Company Number: 2013P1020079

PATIENT
  Age: 15 Year
  Sex: Male

DRUGS (3)
  1. ISOTRETINOIN [Suspect]
  2. UNSPECIFIED CORTICORTEROID [Concomitant]
  3. CEPHALEXIN [Concomitant]

REACTIONS (5)
  - Lip swelling [None]
  - Erythema [None]
  - Abscess [None]
  - Cheilitis [None]
  - Staphylococcal infection [None]
